FAERS Safety Report 5390125-9 (Version None)
Quarter: 2007Q3

REPORT INFORMATION
  Report Type: 
  Country: None (occurrence: None)
  Receive Date: 20070718
  Receipt Date: 20070716
  Transmission Date: 20080115
  Serious: Yes (Life-Threatening)
  Sender: FDA-Public Use
  Company Number: US-BRISTOL-MYERS SQUIBB COMPANY-13846944

PATIENT
  Age: 85 Year
  Sex: Female

DRUGS (1)
  1. CETUXIMAB [Suspect]
     Indication: LIP NEOPLASM MALIGNANT STAGE UNSPECIFIED

REACTIONS (1)
  - THROMBOTIC THROMBOCYTOPENIC PURPURA [None]
